FAERS Safety Report 7381916-3 (Version None)
Quarter: 2011Q1

REPORT INFORMATION
  Report Type: 
  Country: None (occurrence: None)
  Receive Date: 20110329
  Receipt Date: 20110318
  Transmission Date: 20110831
  Serious: Yes (Hospitalization, Other)
  Sender: FDA-Public Use
  Company Number: DE-ELI_LILLY_AND_COMPANY-DE201103005601

PATIENT
  Age: 43 Year
  Sex: Female

DRUGS (3)
  1. FORTEO [Suspect]
     Indication: OSTEOPOROSIS
     Dosage: UNK, DAILY (1/D)
     Route: 058
     Dates: start: 20091214
  2. CORTISONE [Concomitant]
     Dosage: 40 MG, UNK
  3. CALCIUM W/VITAMIN D /00188401/ [Concomitant]
     Dosage: UNK, 2/D

REACTIONS (6)
  - MUSCLE DISORDER [None]
  - PURULENCE [None]
  - PAIN [None]
  - PYREXIA [None]
  - IMMUNE SYSTEM DISORDER [None]
  - THORACIC VERTEBRAL FRACTURE [None]
